FAERS Safety Report 5530356-8 (Version None)
Quarter: 2007Q4

REPORT INFORMATION
  Report Type: 
  Country: None (occurrence: None)
  Receive Date: 20071130
  Receipt Date: 20070718
  Transmission Date: 20080405
  Serious: No
  Sender: FDA-Public Use
  Company Number: A0664870A

PATIENT
  Age: 4 Year
  Sex: Female

DRUGS (4)
  1. AUGMENTIN ES-600 [Suspect]
     Indication: SINUSITIS
     Dosage: 900MG TWICE PER DAY
     Route: 048
     Dates: start: 20070704
  2. FLOVENT [Suspect]
     Indication: ASTHMA
     Route: 055
  3. VENTOLIN [Suspect]
     Indication: ASTHMA
     Route: 065
  4. VERAMYST [Suspect]
     Route: 045

REACTIONS (1)
  - TOOTH DISCOLOURATION [None]
